FAERS Safety Report 4414044-7 (Version None)
Quarter: 2004Q3

REPORT INFORMATION
  Report Type: 
  Country: None (occurrence: None)
  Receive Date: 20040803
  Receipt Date: 20040722
  Transmission Date: 20050211
  Serious: Yes (Other)
  Sender: FDA-Public Use
  Company Number: 2004-07-0784

PATIENT
  Sex: Male

DRUGS (3)
  1. BECOTIDE [Suspect]
     Indication: ASTHMA
     Dosage: 100MCG TWICE PER DAY
     Route: 055
     Dates: start: 20020601, end: 20031101
  2. BECLOMETHASONE DIPROPIONATE [Concomitant]
     Indication: ASTHMA
     Dosage: 250MCG TWICE PER DAY
     Dates: start: 20031114
  3. ALBUTEROL SULFATE [Concomitant]

REACTIONS (1)
  - LEFT VENTRICULAR FAILURE [None]
